FAERS Safety Report 12919534 (Version 1)
Quarter: 2016Q4

REPORT INFORMATION
  Report Type: Spontaneous
  Country: US (occurrence: US)
  Receive Date: 20161103
  Receipt Date: 20161103
  Transmission Date: 20170207
  Serious: Yes (Other)
  Sender: FDA-Public Use
  Company Number: None

PATIENT
  Sex: Female
  Weight: 87.62 kg

DRUGS (3)
  1. LIPITOR [Suspect]
     Active Substance: ATORVASTATIN CALCIUM
     Indication: HYPERLIPIDAEMIA
     Route: 048
     Dates: start: 200802, end: 200807
  2. GENERIC CRESTOR [Suspect]
     Active Substance: ROSUVASTATIN CALCIUM
  3. PRAVACHOL [Suspect]
     Active Substance: PRAVASTATIN SODIUM
     Route: 048
     Dates: start: 200908, end: 201008

REACTIONS (2)
  - Product substitution issue [None]
  - Myalgia [None]
